FAERS Safety Report 12694004 (Version 2)
Quarter: 2016Q4

REPORT INFORMATION
  Report Type: Spontaneous
  Country: US (occurrence: US)
  Receive Date: 20160829
  Receipt Date: 20161018
  Transmission Date: 20170207
  Serious: No
  Sender: FDA-Public Use
  Company Number: US-PFIZER INC-2016400805

PATIENT
  Age: 35 Year
  Sex: Female
  Weight: 91 kg

DRUGS (5)
  1. ADVIL [Suspect]
     Active Substance: IBUPROFEN
     Indication: ABDOMINAL PAIN UPPER
  2. ADVIL [Suspect]
     Active Substance: IBUPROFEN
     Indication: PAIN
  3. ADVIL [Suspect]
     Active Substance: IBUPROFEN
     Indication: ABDOMINAL PAIN UPPER
     Dosage: 200 MG, EVERY 4-6 HOURS
     Route: 048
  4. ADVIL [Suspect]
     Active Substance: IBUPROFEN
     Indication: HEADACHE
  5. HYDROCODONE [Concomitant]
     Active Substance: HYDROCODONE
     Indication: PANCREATITIS
     Dosage: 1 TABLET EVERY 6 HOURS

REACTIONS (3)
  - Drug ineffective for unapproved indication [Unknown]
  - Product solubility abnormal [Unknown]
  - Product coating issue [Unknown]
